FAERS Safety Report 5556205-X (Version None)
Quarter: 2007Q4

REPORT INFORMATION
  Report Type: 
  Country: None (occurrence: None)
  Receive Date: 20071205
  Receipt Date: 20071204
  Transmission Date: 20080405
  Serious: Yes (Death)
  Sender: FDA-Public Use
  Company Number: TCI2007A06231

PATIENT
  Age: 81 Year
  Sex: Female

DRUGS (10)
  1. LANSOPRAZOLE [Suspect]
     Indication: GASTRITIS
     Dosage: 15 MG (15 MG, 1 IN 1 D); PER ORAL, 15 MG (15 MG, 1 IN 1 D); PER ORAL
     Route: 048
     Dates: start: 20071012, end: 20071014
  2. LANSOPRAZOLE [Suspect]
     Indication: REFLUX OESOPHAGITIS
     Dosage: 15 MG (15 MG, 1 IN 1 D); PER ORAL, 15 MG (15 MG, 1 IN 1 D); PER ORAL
     Route: 048
     Dates: start: 20071012, end: 20071014
  3. LANSOPRAZOLE [Suspect]
     Indication: GASTRITIS
     Dosage: 15 MG (15 MG, 1 IN 1 D); PER ORAL, 15 MG (15 MG, 1 IN 1 D); PER ORAL
     Route: 048
     Dates: start: 20071016, end: 20071112
  4. LANSOPRAZOLE [Suspect]
     Indication: REFLUX OESOPHAGITIS
     Dosage: 15 MG (15 MG, 1 IN 1 D); PER ORAL, 15 MG (15 MG, 1 IN 1 D); PER ORAL
     Route: 048
     Dates: start: 20071016, end: 20071112
  5. ETODOLAC [Suspect]
     Indication: POST-TRAUMATIC PAIN
     Dosage: 400 MG (200 MG, 2 IN 1 D); PER ORAL
     Route: 048
     Dates: start: 20071012, end: 20071112
  6. WARFARIN SODIUM [Concomitant]
  7. SELBEX (TEPRENONE) (CAPSULES) [Concomitant]
  8. SENEVACUL (SENNOSIDE A+B) (TABLETS) [Concomitant]
  9. LENDORMIN (BROTIZOLAM) (TABLETS) [Concomitant]
  10. DUPRIVAN (PROPOFOL) (INJECTION) [Concomitant]

REACTIONS (4)
  - AGRANULOCYTOSIS [None]
  - CARDIO-RESPIRATORY ARREST [None]
  - SEPSIS [None]
  - UPPER RESPIRATORY TRACT INFLAMMATION [None]
